FAERS Safety Report 18819476 (Version 2)
Quarter: 2021Q1

REPORT INFORMATION
  Report Type: Report from Study
  Country: None (occurrence: US)
  Receive Date: 20210202
  Receipt Date: 20210324
  Transmission Date: 20210419
  Serious: Yes (Hospitalization)
  Sender: FDA-Public Use
  Company Number: US-ABBVIE-21K-163-3755519-00

PATIENT
  Age: 62 Year
  Sex: Female

DRUGS (1)
  1. HUMIRA [Suspect]
     Active Substance: ADALIMUMAB
     Indication: COLITIS ULCERATIVE
     Dosage: CITRATE FREE
     Route: 058
     Dates: start: 20201117, end: 20210126

REACTIONS (3)
  - Intestinal mass [Not Recovered/Not Resolved]
  - Pain [Not Recovered/Not Resolved]
  - Pancreatitis [Recovering/Resolving]

NARRATIVE: CASE EVENT DATE: 20201117
